FAERS Safety Report 23321980 (Version 1)
Quarter: 2023Q4

REPORT INFORMATION
  Report Type: Spontaneous
  Country: US (occurrence: None)
  Receive Date: 20231220
  Receipt Date: 20231220
  Transmission Date: 20240110
  Serious: Yes (Hospitalization)
  Sender: FDA-Public Use
  Company Number: None

PATIENT
  Age: 11 Year
  Sex: Male
  Weight: 30.4 kg

DRUGS (7)
  1. CYCLOPHOSPHAMIDE [Suspect]
     Active Substance: CYCLOPHOSPHAMIDE
     Dates: end: 20231031
  2. CYTARABINE [Suspect]
     Active Substance: CYTARABINE
     Dates: end: 20231110
  3. METHOTREXATE [Suspect]
     Active Substance: METHOTREXATE
     Dates: end: 20231107
  4. PEGASPARGASE [Suspect]
     Active Substance: PEGASPARGASE
     Dates: end: 20231114
  5. GLEEVEC [Suspect]
     Active Substance: IMATINIB MESYLATE
     Dates: end: 20231121
  6. THIOGUANINE [Suspect]
     Active Substance: THIOGUANINE
     Dates: end: 20231113
  7. VINCRISTINE SULFATE [Suspect]
     Active Substance: VINCRISTINE SULFATE
     Dates: end: 20231121

REACTIONS (1)
  - Febrile neutropenia [None]

NARRATIVE: CASE EVENT DATE: 20231122
